FAERS Safety Report 24027691 (Version 1)
Quarter: 2024Q2

REPORT INFORMATION
  Report Type: Spontaneous
  Country: GB (occurrence: GB)
  Receive Date: 20240628
  Receipt Date: 20240628
  Transmission Date: 20240716
  Serious: Yes (Other)
  Sender: FDA-Public Use
  Company Number: GB-MHRA-TPP10661999C15244238YC1718703653947

PATIENT
  Age: 73 Year
  Sex: Female
  Weight: 51 kg

DRUGS (7)
  1. RAMIPRIL [Suspect]
     Active Substance: RAMIPRIL
     Indication: Hypertension
     Dosage: 2.5 MILLIGRAM, ONCE A DAY
     Route: 065
  2. FLUCLOXACILLIN [Concomitant]
     Active Substance: FLUCLOXACILLIN
     Indication: Ill-defined disorder
     Dosage: 1 DOSAGE FORM(TAKE ONE 4 TIMES/DAY)
     Route: 065
     Dates: start: 20240422, end: 20240429
  3. BETAMETHASONE VALERATE [Concomitant]
     Active Substance: BETAMETHASONE VALERATE
     Indication: Product used for unknown indication
     Dosage: UNK(MODERATE POTENCY STEROID CREAM -  APPLY THINLY ...)
     Route: 065
     Dates: start: 20240502, end: 20240530
  4. CLOBETASONE BUTYRATE [Concomitant]
     Active Substance: CLOBETASONE BUTYRATE
     Indication: Product used for unknown indication
     Dosage: MODERATE POTENCY STEROID CREAM - APPLY TWICE A ...
     Route: 065
     Dates: start: 20240520, end: 20240617
  5. MINERAL OIL\PARAFFIN [Concomitant]
     Active Substance: MINERAL OIL\PARAFFIN
     Indication: Product used for unknown indication
     Dosage: APPLY TO BOTH LEGS 4 TIMES A DAY
     Route: 065
     Dates: start: 20240604, end: 20240618
  6. AMLODIPINE [Concomitant]
     Active Substance: AMLODIPINE BESYLATE
     Indication: Product used for unknown indication
     Dosage: 1 DOSAGE FORM, ONCE A DAY(TAKE ONE DAILY)
     Route: 065
     Dates: start: 20231027, end: 20240520
  7. FERROUS SULFATE [Concomitant]
     Active Substance: FERROUS SULFATE
     Indication: Product used for unknown indication
     Dosage: 1 DOSAGE FORM, ONCE A DAY
     Route: 065
     Dates: start: 20231027

REACTIONS (3)
  - Depressed mood [Recovering/Resolving]
  - Hyponatraemia [Unknown]
  - Cough [Unknown]

NARRATIVE: CASE EVENT DATE: 20240618
